FAERS Safety Report 16381883 (Version 1)
Quarter: 2019Q2

REPORT INFORMATION
  Report Type: Spontaneous
  Country: GB (occurrence: GB)
  Receive Date: 20190603
  Receipt Date: 20190603
  Transmission Date: 20190711
  Serious: Yes (Hospitalization, Disabling)
  Sender: FDA-Public Use
  Company Number: GB-TEVA-2019-GB-1056989

PATIENT
  Age: 83 Year
  Sex: Male

DRUGS (8)
  1. TAMSULOSIN [Concomitant]
     Active Substance: TAMSULOSIN
  2. SIMVASTATIN. [Concomitant]
     Active Substance: SIMVASTATIN
  3. WARFARIN [Suspect]
     Active Substance: WARFARIN
     Indication: ATRIAL FIBRILLATION
     Dosage: VARIABLE ACCORDING TO INTERNATIONAL NORMALISED RATIO.
     Route: 048
     Dates: start: 20170301, end: 20190420
  4. SERTRALINE [Concomitant]
     Active Substance: SERTRALINE HYDROCHLORIDE
  5. RAMIPRIL. [Concomitant]
     Active Substance: RAMIPRIL
  6. AMLODIPINE [Concomitant]
     Active Substance: AMLODIPINE BESYLATE
  7. FOLIC ACID. [Concomitant]
     Active Substance: FOLIC ACID
  8. BISOPROLOL [Concomitant]
     Active Substance: BISOPROLOL

REACTIONS (5)
  - Subdural haemorrhage [Unknown]
  - Dizziness postural [Unknown]
  - Balance disorder [Unknown]
  - Asthenia [Unknown]
  - Brain midline shift [Unknown]

NARRATIVE: CASE EVENT DATE: 20190419
